FAERS Safety Report 8969646 (Version 1)
Quarter: 2012Q4

REPORT INFORMATION
  Report Type: 
  Country: US (occurrence: US)
  Receive Date: 20121218
  Receipt Date: 20121218
  Transmission Date: 20130627
  Serious: Yes (Other)
  Sender: FDA-Public Use
  Company Number: US-ASTRAZENECA-2012SE92494

PATIENT

DRUGS (2)
  1. CAPRELSA [Suspect]
     Indication: THYROID CANCER
     Route: 048
  2. UNKNOWN [Concomitant]

REACTIONS (1)
  - Pulmonary haemorrhage [Unknown]
